FAERS Safety Report 15712901 (Version 1)
Quarter: 2018Q4

REPORT INFORMATION
  Report Type: Spontaneous
  Country: DE (occurrence: DE)
  Receive Date: 20181212
  Receipt Date: 20181212
  Transmission Date: 20190205
  Serious: Yes (Other)
  Sender: FDA-Public Use
  Company Number: PHHY2018DE179874

PATIENT
  Age: 43 Year
  Sex: Female

DRUGS (1)
  1. MOMETAHEXAL [Suspect]
     Active Substance: MOMETASONE
     Indication: SINUSITIS
     Route: 065

REACTIONS (3)
  - Eye swelling [Recovering/Resolving]
  - Dyspnoea [Recovering/Resolving]
  - Epistaxis [Recovering/Resolving]
